FAERS Safety Report 8997546 (Version 3)
Quarter: 2013Q2

REPORT INFORMATION
  Report Type: Spontaneous
  Country: US (occurrence: US)
  Receive Date: 20130104
  Receipt Date: 20130627
  Transmission Date: 20140414
  Serious: Yes (Hospitalization, Other)
  Sender: FDA-Public Use
  Company Number: US-009507513-1202USA01973

PATIENT
  Sex: Female

DRUGS (8)
  1. FOSAMAX [Suspect]
     Indication: OSTEOPOROSIS
     Dosage: 70 MG, QW
     Route: 048
     Dates: start: 1998, end: 200805
  2. FOSAMAX [Suspect]
     Indication: OSTEOPENIA
  3. FOSAMAX [Suspect]
     Indication: OSTEOPOROSIS
     Dosage: 70 MG, QW
     Route: 048
     Dates: start: 20080522, end: 201009
  4. FOSAMAX [Suspect]
     Indication: OSTEOPENIA
  5. ALENDRONATE SODIUM [Suspect]
     Dosage: UNK
     Dates: start: 20080522, end: 201009
  6. VITAMINS (UNSPECIFIED) [Concomitant]
     Dosage: UNK, QD
     Dates: start: 1996
  7. CALCIUM (UNSPECIFIED) [Concomitant]
     Dosage: UNK
     Dates: start: 1996
  8. VITAMIN D (UNSPECIFIED) [Concomitant]
     Dosage: UNK
     Dates: start: 1996

REACTIONS (43)
  - Femur fracture [Unknown]
  - Closed fracture manipulation [Unknown]
  - Internal fixation of fracture [Unknown]
  - Open reduction of fracture [Unknown]
  - Fall [Unknown]
  - Humerus fracture [Unknown]
  - Fall [Unknown]
  - Cardiac failure congestive [Unknown]
  - Renal failure acute [Unknown]
  - Respiratory failure [Unknown]
  - Aortic stenosis [Unknown]
  - Leukocytosis [Unknown]
  - Hypotension [Unknown]
  - Chronic obstructive pulmonary disease [Unknown]
  - Anaemia [Unknown]
  - Back pain [Unknown]
  - Hypothyroidism [Unknown]
  - Anaemia [Unknown]
  - Peptic ulcer [Unknown]
  - Dental implantation [Unknown]
  - Periodontal operation [Unknown]
  - Tooth disorder [Unknown]
  - Essential hypertension [Unknown]
  - Gastrointestinal disorder [Unknown]
  - Osteoarthritis [Unknown]
  - Low turnover osteopathy [Unknown]
  - Packed red blood cell transfusion [Unknown]
  - Creatinine renal clearance decreased [Unknown]
  - Underweight [Unknown]
  - Arthropathy [Unknown]
  - Shoulder operation [Unknown]
  - Sinus tachycardia [Unknown]
  - Supraventricular extrasystoles [Unknown]
  - Hypotension [Unknown]
  - Scoliosis [Unknown]
  - Spinal compression fracture [Unknown]
  - Spinal compression fracture [Unknown]
  - Rib fracture [Unknown]
  - Vertebroplasty [Unknown]
  - Gastrooesophageal reflux disease [Unknown]
  - Gastritis [Unknown]
  - Musculoskeletal pain [Unknown]
  - Arthralgia [Unknown]
